FAERS Safety Report 10231224 (Version 1)
Quarter: 2014Q2

REPORT INFORMATION
  Report Type: Spontaneous
  Country: US (occurrence: None)
  Receive Date: 20140506
  Receipt Date: 20140506
  Transmission Date: 20141212
  Serious: Yes (Life-Threatening)
  Sender: FDA-Public Use
  Company Number: 1285290

PATIENT
  Age: 57 Year
  Sex: Male
  Weight: 60.19 kg

DRUGS (45)
  1. AVASTIN(BEVACIZUMAB)(BEVACIZUMAB) [Suspect]
     Indication: LUNG NEOPLASM MALIGNANT
     Dosage: (15 MG/KG, 1 IN 3 WK), INTRAVENOUS (NOT OTHERWISE SPECIFIED)
     Route: 042
     Dates: start: 20130329, end: 20130401
  2. HYDROMORPHONE HCL (HYDROMMORPHONE HYDROCHLORIDE) [Concomitant]
  3. IPRATROPIUM BROMIDE (IPRATROPIUM BROMIDE0 [Concomitant]
  4. SODIUM CHLORIDE(SODIUM CHLORIDE) [Concomitant]
  5. PACLITAXEL(PACLITAXEL) [Concomitant]
  6. SODIUM BICARBONATE (SODIUM BICARBONATE) [Concomitant]
  7. POTASSIUM CHLORIDE (POTASSIUM CHLORIDE) [Concomitant]
  8. DEXTROSE (DEXTROSE) [Concomitant]
  9. ALBUMIN HUMAN (ALBUMIN HUMAN) [Concomitant]
  10. ACETAMINOPHEN(PARACETAMOL) [Concomitant]
  11. MAGNESIUM SULPHATE (MAGNESIUM SULFATE) [Concomitant]
  12. FUROSEMIDE(FUROSEMIDE) [Concomitant]
  13. COUMADIN(WARFARIN SODIUM)(TABLET) [Concomitant]
  14. XYLOCAINE(LIDOCAINE HYDROCHLORIDE)(SOLUTION) [Concomitant]
  15. MEGESTROL ACETATE (MEGESTROL ACETATE) [Concomitant]
  16. LANSOPRAZOLE(LANSOPRAZOLE) [Concomitant]
  17. HEPARIN SODIUM (HEPARIN SODIUM) [Concomitant]
  18. MORPHINE SULFATE (MORPHINE SULFATE) [Concomitant]
  19. INSULIN HUMAN REGULAR (INSULIN HUMAN) [Concomitant]
  20. SUCRALAFATE(SUCRALAFATE) [Concomitant]
  21. LEVALBUTEROL HYDROCHLORIDE (LEVALBUTEROL HYDROCHLORIDE) [Concomitant]
  22. FENTANYL (FENTANYL CITRATE, FENTANYL) [Concomitant]
  23. PETROLATUM(PETROLATUM) [Concomitant]
  24. RANOLAZINE(RANOLAZINE HYDROCHLORIDE)(TABLET) [Concomitant]
  25. IOHEXOL(IOHEXOL) [Concomitant]
  26. ADVAIR DISKUS (FLUTICASONE PROPIONATE, SALMETROL XINAFOATE) [Concomitant]
  27. MAGNESIUM HYDROXIDE(MAGNESIUM HYDROXIDE) [Concomitant]
  28. TIOTROPIUM BROMIDE (TIOTROPIUM BROMIDE)(CAPSULE) [Concomitant]
  29. HYDROCORTISONE(HYDROCORTISONE) [Concomitant]
  30. ETOMIDATE(ETOMIDATE) [Concomitant]
  31. ROCURONIUM BROMIDE (ROCURONIUM BROMIDE)(INJECTION) [Concomitant]
  32. ALBUTEROL SULFATE (SALBUTAMOL/SALBUTAMOL SULFATE) [Concomitant]
  33. BUDESONIDE(BUDESONIDE) [Concomitant]
  34. PANTOPRAZOLE(PANTOPRAZOLE) [Concomitant]
  35. PROPOFOL(PROPOFOL) [Concomitant]
  36. PIPERACILLIN SODIUM/TAZOBACTAM(PIPPERACILLIN SODIUM, TAZOBACTAM SODIUM) [Concomitant]
  37. GENTAMICIN SULFATE (GENTAMICIN SULFATE) [Concomitant]
  38. BACITRACIN(BACITRACIN) [Concomitant]
  39. LORAZEPAM(LORAZEPAM) [Concomitant]
  40. KETOROLAC(KETOROLAC-TROMETAMOL) [Concomitant]
  41. GUAIFENESIN(GUAFENESIN) [Concomitant]
  42. CIPROFLOXACIN(CIPROFLOXACIN) [Concomitant]
  43. FLUCONAZOLE(FLUCONAZOLE) [Concomitant]
  44. MIDAZOLAM HYDROCHLORIDE)(INJECTION, SOLUTION) [Concomitant]
  45. CARBOPLATIN (CARBOPLATIN) [Concomitant]

REACTIONS (1)
  - Duodenal perforation [None]
